FAERS Safety Report 16449357 (Version 1)
Quarter: 2019Q2

REPORT INFORMATION
  Report Type: Spontaneous
  Country: US (occurrence: US)
  Receive Date: 20190619
  Receipt Date: 20190619
  Transmission Date: 20190711
  Serious: No
  Sender: FDA-Public Use
  Company Number: US-TEVA-2019-US-1063062

PATIENT
  Age: 78 Year
  Sex: Male

DRUGS (1)
  1. METOPROLOL SUCCINATE ER ACTAVIS [Suspect]
     Active Substance: METOPROLOL SUCCINATE
     Indication: BLOOD PRESSURE MEASUREMENT
     Dosage: TOOK ONE TABLET

REACTIONS (1)
  - Gastrointestinal disorder [Unknown]
